FAERS Safety Report 7708153-4 (Version None)
Quarter: 2011Q3

REPORT INFORMATION
  Report Type: 
  Country: None (occurrence: None)
  Receive Date: 20110825
  Receipt Date: 20110817
  Transmission Date: 20111222
  Serious: No
  Sender: FDA-Public Use
  Company Number: US-BIOGENIDEC-2011BI016435

PATIENT
  Age: 49 Year
  Sex: Female

DRUGS (2)
  1. TYSABRI [Suspect]
     Indication: MULTIPLE SCLEROSIS
     Route: 042
     Dates: start: 20110419
  2. LOW DOSE NALTREXONE [Concomitant]
     Indication: MULTIPLE SCLEROSIS

REACTIONS (6)
  - CARDIAC MURMUR [None]
  - NAUSEA [None]
  - WEIGHT DECREASED [None]
  - HEADACHE [None]
  - DECREASED APPETITE [None]
  - PERICARDIAL EFFUSION [None]
